FAERS Safety Report 18393622 (Version 2)
Quarter: 2020Q4

REPORT INFORMATION
  Report Type: Spontaneous
  Country: US (occurrence: US)
  Receive Date: 20201016
  Receipt Date: 20201201
  Transmission Date: 20210114
  Serious: No
  Sender: FDA-Public Use
  Company Number: US-PFIZER INC-2020399520

PATIENT

DRUGS (1)
  1. ADVIL [Suspect]
     Active Substance: IBUPROFEN
     Dosage: UNK (TAKE 2 AND MAKE SURE I TAKE THEM AT LEAST 2HRS BEFORE BED)

REACTIONS (2)
  - Poor quality sleep [Unknown]
  - Middle insomnia [Unknown]
